FAERS Safety Report 17560438 (Version 6)
Quarter: 2020Q4

REPORT INFORMATION
  Report Type: Spontaneous
  Country: US (occurrence: US)
  Receive Date: 20200319
  Receipt Date: 20201214
  Transmission Date: 20210113
  Serious: Yes (Hospitalization, Other)
  Sender: FDA-Public Use
  Company Number: US-PFIZER INC-2019530873

PATIENT
  Age: 78 Year
  Sex: Female

DRUGS (3)
  1. XELJANZ XR [Suspect]
     Active Substance: TOFACITINIB CITRATE
     Indication: RHEUMATOID ARTHRITIS
     Dosage: 11 MG, ALTERNATE DAY (EVERY OTHER DAY)
  2. XELJANZ XR [Suspect]
     Active Substance: TOFACITINIB CITRATE
     Dosage: 11 MG, 1X/DAY
     Route: 048
  3. XELJANZ XR [Suspect]
     Active Substance: TOFACITINIB CITRATE
     Dosage: 11 MG, DAILY

REACTIONS (18)
  - SARS-CoV-2 test positive [Unknown]
  - Peripheral swelling [Recovered/Resolved]
  - Dizziness [Unknown]
  - Dehydration [Unknown]
  - Fall [Unknown]
  - Oesophageal obstruction [Unknown]
  - Asthenia [Unknown]
  - Spinal fracture [Unknown]
  - Pain in extremity [Unknown]
  - Weight decreased [Unknown]
  - Gastric ulcer [Unknown]
  - Dysphagia [Recovered/Resolved with Sequelae]
  - Gastrooesophageal reflux disease [Unknown]
  - Inflammation [Unknown]
  - Condition aggravated [Unknown]
  - Finger deformity [Unknown]
  - Intentional product misuse [Unknown]
  - Erythema [Unknown]

NARRATIVE: CASE EVENT DATE: 2016
